FAERS Safety Report 16296999 (Version 2)
Quarter: 2019Q2

REPORT INFORMATION
  Report Type: Report from Study
  Country: CA (occurrence: CA)
  Receive Date: 20190510
  Receipt Date: 20190517
  Transmission Date: 20190711
  Serious: Yes (Other)
  Sender: FDA-Public Use
  Company Number: CA-GLAXOSMITHKLINE-CA2019GSK081731

PATIENT
  Age: 30 Year
  Sex: Female
  Weight: 81 kg

DRUGS (2)
  1. BUPROPION HYDROCHLORIDE XL [Suspect]
     Active Substance: BUPROPION HYDROCHLORIDE
     Indication: PRODUCT USED FOR UNKNOWN INDICATION
     Dosage: UNK
  2. REMICADE [Suspect]
     Active Substance: INFLIXIMAB
     Indication: CROHN^S DISEASE
     Dosage: 300 MG, (ONCE EVERY 4 WEEKS)
     Route: 042

REACTIONS (4)
  - Lower respiratory tract infection [Recovered/Resolved]
  - Euphoric mood [Recovered/Resolved]
  - Crohn^s disease [Recovered/Resolved]
  - Muscle spasms [Recovered/Resolved]
